FAERS Safety Report 9023470 (Version 1)
Quarter: 2013Q1

REPORT INFORMATION
  Report Type: Spontaneous
  Country: US (occurrence: US)
  Receive Date: 20130121
  Receipt Date: 20130121
  Transmission Date: 20140127
  Serious: No
  Sender: FDA-Public Use
  Company Number: US-OPTIMER PHARMACEUTICALS, INC.-20120115

PATIENT
  Age: 61 Year
  Sex: Male

DRUGS (7)
  1. DIFICID [Suspect]
     Indication: CLOSTRIDIUM DIFFICILE COLITIS
     Dosage: 200 MG, BID
     Route: 048
     Dates: start: 20111227, end: 20120119
  2. DIFICID [Suspect]
     Dosage: UNK
     Dates: start: 20120816
  3. ASTELIN [Concomitant]
     Dosage: UNK
     Dates: start: 20120813
  4. LOTREL [Concomitant]
     Indication: HYPERTENSION
     Dosage: 5MG/20MG (1 TABLET), BID
     Route: 048
  5. LIPITOR [Concomitant]
     Indication: HYPERLIPIDAEMIA
     Dosage: 40 MG (1 TABLET), QD
     Route: 048
  6. BYSTOLIC [Concomitant]
     Indication: HYPERTENSION
     Dosage: 5 MG (1 TABLET), QD
     Route: 048
  7. ASPIRIN [Concomitant]
     Dosage: 81 MG (1 TABLET), QD
     Route: 048

REACTIONS (13)
  - Clostridium difficile colitis [Not Recovered/Not Resolved]
  - Disease recurrence [Not Recovered/Not Resolved]
  - Chest discomfort [Not Recovered/Not Resolved]
  - Diarrhoea [Not Recovered/Not Resolved]
  - Flank pain [Not Recovered/Not Resolved]
  - Defaecation urgency [Not Recovered/Not Resolved]
  - Fatigue [Not Recovered/Not Resolved]
  - Oropharyngeal pain [Not Recovered/Not Resolved]
  - Nausea [Not Recovered/Not Resolved]
  - Body temperature increased [Not Recovered/Not Resolved]
  - Cough [Not Recovered/Not Resolved]
  - Off label use [Unknown]
  - Lung disorder [None]
